FAERS Safety Report 9198435 (Version 1)
Quarter: 2013Q1

REPORT INFORMATION
  Report Type: Spontaneous
  Country: US (occurrence: None)
  Receive Date: 20130327
  Receipt Date: 20130327
  Transmission Date: 20140127
  Serious: Yes (Hospitalization)
  Sender: FDA-Public Use
  Company Number: None

PATIENT
  Age: 61 Year
  Sex: Female
  Weight: 72 kg

DRUGS (1)
  1. REGORAFENIB [Suspect]
     Indication: RECTAL CANCER
     Dosage: 160 MG ONCE DAILY PO
     Route: 048

REACTIONS (4)
  - Rash [None]
  - Pain [None]
  - Swelling [None]
  - Blister [None]
